FAERS Safety Report 7903576-2 (Version None)
Quarter: 2011Q4

REPORT INFORMATION
  Report Type: 
  Country: None (occurrence: None)
  Receive Date: 20111109
  Receipt Date: 20111109
  Transmission Date: 20120403
  Serious: Yes (Hospitalization)
  Sender: FDA-Public Use
  Company Number: None

PATIENT
  Age: 90 Year
  Sex: Female
  Weight: 51.709 kg

DRUGS (1)
  1. BONIVA [Suspect]
     Indication: PROPHYLAXIS
     Dosage: 150MG
     Route: 048
     Dates: start: 20050301, end: 20111101

REACTIONS (3)
  - FALL [None]
  - MYALGIA [None]
  - LOWER LIMB FRACTURE [None]
